FAERS Safety Report 12397344 (Version 1)
Quarter: 2016Q2

REPORT INFORMATION
  Report Type: Spontaneous
  Country: US (occurrence: None)
  Receive Date: 20160523
  Receipt Date: 20160523
  Transmission Date: 20160815
  Serious: No
  Sender: FDA-Public Use
  Company Number: None

PATIENT
  Age: 43 Year
  Sex: Female
  Weight: 54.89 kg

DRUGS (1)
  1. MELOXICAM 15MG TABLET UNICHEM PHARMAC [Suspect]
     Active Substance: MELOXICAM
     Indication: ARTHROPATHY

REACTIONS (2)
  - Swelling face [None]
  - Rash [None]

NARRATIVE: CASE EVENT DATE: 20160520
